FAERS Safety Report 4895469-2 (Version None)
Quarter: 2006Q1

REPORT INFORMATION
  Report Type: 
  Country: None (occurrence: None)
  Receive Date: 20060130
  Receipt Date: 20060119
  Transmission Date: 20060701
  Serious: Yes (Other)
  Sender: FDA-Public Use
  Company Number: JP-BOEHRINGER INGELHEIM PHARMACEUTICALS, INC.-2006-BP-00880YA

PATIENT
  Age: 75 Year
  Sex: Male

DRUGS (2)
  1. HARNAL [Suspect]
     Indication: DYSURIA
     Route: 048
  2. ETILEFRINE HYDROCHLORIDE [Concomitant]
     Indication: ORTHOSTATIC HYPOTENSION

REACTIONS (4)
  - DELIRIUM [None]
  - LABILE BLOOD PRESSURE [None]
  - SUBDURAL HYGROMA [None]
  - SYNCOPE [None]
